FAERS Safety Report 18604483 (Version 2)
Quarter: 2020Q4

REPORT INFORMATION
  Report Type: Spontaneous
  Country: DE (occurrence: DE)
  Receive Date: 20201211
  Receipt Date: 20201230
  Transmission Date: 20210114
  Serious: Yes (Other)
  Sender: FDA-Public Use
  Company Number: DE-EMCURE PHARMACEUTICALS LTD-E2B_00003455

PATIENT
  Age: 65 Year
  Sex: Female

DRUGS (11)
  1. LEVETIRACETAM. [Interacting]
     Active Substance: LEVETIRACETAM
     Indication: PARTIAL SEIZURES
     Dosage: FREQUENCY - IN 1 DAYS  1000,MILLIGRAM
  2. TEMOZOLOMIDE. [Interacting]
     Active Substance: TEMOZOLOMIDE
     Dosage: 200 MILLIGRAM
  3. LEVETIRACETAM. [Interacting]
     Active Substance: LEVETIRACETAM
     Dosage: FREQUENCY - IN 1 DAYS  2750,MILLIGRAM
  4. TEMOZOLOMIDE. [Interacting]
     Active Substance: TEMOZOLOMIDE
     Indication: GLIOBLASTOMA MULTIFORME
     Dosage: 50 MILLIGRAM/SQ. METER, QD
     Route: 048
  5. CLOBAZAM. [Interacting]
     Active Substance: CLOBAZAM
     Indication: PARTIAL SEIZURES
     Dosage: FREQUENCY - IN 1 DAYS  5,MILLIGRAM
  6. LORAZEPAM. [Interacting]
     Active Substance: LORAZEPAM
     Indication: PARTIAL SEIZURES
     Dosage: DAILY DOSE: 1 MG MILLIGRAM(S) EVERY DAY
  7. TEMOZOLOMIDE. [Interacting]
     Active Substance: TEMOZOLOMIDE
     Dosage: 150 MG/M2/D/CYCLE FOR THE FIRST TWO CYCLES
  8. ARTESUNATE [Interacting]
     Active Substance: ARTESUNATE
     Indication: MALARIA
     Dosage: 200 MG, DAILY
     Dates: start: 20150920, end: 20151020
  9. VALPROIC ACID. [Interacting]
     Active Substance: VALPROIC ACID
     Indication: PRODUCT USED FOR UNKNOWN INDICATION
  10. COPTIS-KUSH DECOCT [Interacting]
     Active Substance: HERBALS
     Indication: PRODUCT USED FOR UNKNOWN INDICATION
     Dosage: 20 DOSES
  11. ONDANSETRON [Suspect]
     Active Substance: ONDANSETRON
     Indication: PROPHYLAXIS OF NAUSEA AND VOMITING
     Dosage: FREQUENCY - IN 1 DAYS  8,MILLIGRAM

REACTIONS (24)
  - Off label use [Unknown]
  - Glioblastoma multiforme [Recovered/Resolved]
  - Drug interaction [Recovered/Resolved]
  - Nausea [Recovered/Resolved]
  - White blood cell count decreased [Recovered/Resolved]
  - Depressed mood [Recovered/Resolved]
  - Drug-induced liver injury [Recovered/Resolved]
  - Chest pain [Recovering/Resolving]
  - Hepatic enzyme increased [Recovered/Resolved]
  - Drug-induced liver injury [Recovered/Resolved]
  - Drug interaction [Recovered/Resolved]
  - Dyspepsia [Recovered/Resolved]
  - Condition aggravated [Recovered/Resolved]
  - Hepatotoxicity [Recovered/Resolved]
  - Product use in unapproved indication [Unknown]
  - Weight decreased [Recovered/Resolved]
  - Monocyte count decreased [Recovered/Resolved]
  - Alanine aminotransferase increased [Recovered/Resolved]
  - Fatigue [Recovered/Resolved]
  - Leukopenia [Unknown]
  - Blood lactate dehydrogenase increased [Recovered/Resolved]
  - Intentional product misuse [Unknown]
  - Asthenia [Recovered/Resolved]
  - Gamma-glutamyltransferase increased [Recovered/Resolved]

NARRATIVE: CASE EVENT DATE: 2015
